FAERS Safety Report 5800383-1 (Version None)
Quarter: 2008Q3

REPORT INFORMATION
  Report Type: 
  Country: None (occurrence: None)
  Receive Date: 20080703
  Receipt Date: 20080623
  Transmission Date: 20090109
  Serious: Yes (Hospitalization)
  Sender: FDA-Public Use
  Company Number: FR-MERCK-0804FRA00132

PATIENT
  Age: 56 Year
  Sex: Male

DRUGS (5)
  1. ISENTRESS [Suspect]
     Indication: HIV INFECTION
     Route: 048
     Dates: start: 20080209
  2. NEVIRAPINE [Suspect]
     Indication: HIV INFECTION
     Route: 048
     Dates: start: 20080209, end: 20080222
  3. NEVIRAPINE [Suspect]
     Route: 048
     Dates: start: 20080223, end: 20080301
  4. ABACAVIR SULFATE AND LAMIVUDINE [Concomitant]
     Indication: HIV INFECTION
     Route: 048
     Dates: start: 20071222, end: 20080301
  5. BACTRIM [Concomitant]
     Indication: PROPHYLAXIS
     Route: 065
     Dates: start: 20071201

REACTIONS (1)
  - DRUG RASH WITH EOSINOPHILIA AND SYSTEMIC SYMPTOMS [None]
